FAERS Safety Report 9523079 (Version 1)
Quarter: 2013Q3

REPORT INFORMATION
  Report Type: Spontaneous
  Country: US (occurrence: US)
  Receive Date: 20130913
  Receipt Date: 20130913
  Transmission Date: 20140515
  Serious: No
  Sender: FDA-Public Use
  Company Number: US-PFIZER INC-2013262036

PATIENT
  Age: 40 Year
  Sex: Male
  Weight: 72.56 kg

DRUGS (1)
  1. VIAGRA [Suspect]
     Indication: ERECTILE DYSFUNCTION
     Dosage: 25 MG (BY CUTTING 50MG INTO HALF), AS NEEDED
     Route: 048
     Dates: start: 20130907

REACTIONS (1)
  - Drug ineffective [Unknown]
